FAERS Safety Report 9614482 (Version 1)
Quarter: 2013Q4

REPORT INFORMATION
  Report Type: Spontaneous
  Country: US (occurrence: None)
  Receive Date: 20131009
  Receipt Date: 20131009
  Transmission Date: 20140711
  Serious: Yes (Hospitalization)
  Sender: FDA-Public Use
  Company Number: None

PATIENT
  Age: 44 Year
  Sex: Male
  Weight: 89.9 kg

DRUGS (2)
  1. NAPROXEN [Suspect]
     Indication: PAIN
     Route: 048
     Dates: start: 20130726, end: 20130802
  2. NAPROXEN [Suspect]
     Indication: VASCULITIS
     Route: 048
     Dates: start: 20130726, end: 20130802

REACTIONS (2)
  - Purpura [None]
  - Rash [None]
